FAERS Safety Report 6299479-2 (Version None)
Quarter: 2009Q3

REPORT INFORMATION
  Report Type: 
  Country: None (occurrence: None)
  Receive Date: 20090806
  Receipt Date: 20090730
  Transmission Date: 20100115
  Serious: Yes (Hospitalization)
  Sender: FDA-Public Use
  Company Number: B0585648A

PATIENT
  Sex: Female

DRUGS (1)
  1. ELTROMBOPAG OLAMINE [Suspect]
     Indication: LIVER DISORDER
     Route: 048
     Dates: start: 20090701, end: 20090714

REACTIONS (3)
  - ABDOMINAL DISTENSION [None]
  - ASCITES [None]
  - FLANK PAIN [None]
